FAERS Safety Report 25082464 (Version 3)
Quarter: 2025Q1

REPORT INFORMATION
  Report Type: Spontaneous
  Country: US (occurrence: US)
  Receive Date: 20250317
  Receipt Date: 20250326
  Transmission Date: 20250409
  Serious: Yes (Other)
  Sender: AMGEN
  Company Number: US-AMGEN-USASP2025049207

PATIENT
  Age: 74 Year
  Sex: Male
  Weight: 95.3 kg

DRUGS (13)
  1. REPATHA [Suspect]
     Active Substance: EVOLOCUMAB
     Indication: Product used for unknown indication
     Dosage: 140 MILLIGRAM, Q2WK (UNDER THE SKIN)
     Route: 065
     Dates: start: 20250225
  2. AUGMENTIN [Concomitant]
     Active Substance: AMOXICILLIN\CLAVULANATE POTASSIUM
     Dosage: 1 DOSAGE FORM, BID (875-125 MG PER TABLET FOR 10 DAYS)
     Route: 048
     Dates: start: 20250306, end: 20250316
  3. VITAMIN D3 [Concomitant]
     Active Substance: CHOLECALCIFEROL
     Dosage: 10 MICROGRAM, QD
     Route: 048
  4. ZITHROMAX [Concomitant]
     Active Substance: AZITHROMYCIN DIHYDRATE
     Route: 048
     Dates: start: 20250203, end: 20250311
  5. ZITHROMAX [Concomitant]
     Active Substance: AZITHROMYCIN DIHYDRATE
     Route: 048
     Dates: start: 20250311
  6. DELTASONE [Concomitant]
     Active Substance: PREDNISONE
     Dosage: 40 MILLIGRAM, QD (FOR 3 DAYS)
     Route: 048
     Dates: start: 20250311
  7. DELTASONE [Concomitant]
     Active Substance: PREDNISONE
     Dosage: 30 MILLIGRAM, QD (FOR 3 DAYS)
     Route: 048
  8. DELTASONE [Concomitant]
     Active Substance: PREDNISONE
     Dosage: 20 MILLIGRAM, QD (FOR 3 DAYS)
     Route: 048
  9. DELTASONE [Concomitant]
     Active Substance: PREDNISONE
     Dosage: 10 MILLIGRAM, QD (FOR 3 DAYS)
     Route: 048
     Dates: end: 20250323
  10. ALBUTEROL [Concomitant]
     Active Substance: ALBUTEROL
     Dates: start: 20250311
  11. ISOVUE 370 [Concomitant]
     Active Substance: IOPAMIDOL
     Route: 040
     Dates: start: 20250311
  12. SODIUM CHLORIDE [Concomitant]
     Active Substance: SODIUM CHLORIDE
     Route: 040
  13. SOLU-MEDROL [Concomitant]
     Active Substance: METHYLPREDNISOLONE SODIUM SUCCINATE
     Route: 040

REACTIONS (6)
  - Chronic obstructive pulmonary disease [Unknown]
  - Muscle spasms [Recovering/Resolving]
  - Blood pressure increased [Unknown]
  - Urine analysis abnormal [Unknown]
  - Full blood count abnormal [Unknown]
  - Metabolic function test abnormal [Unknown]

NARRATIVE: CASE EVENT DATE: 20250227
